FAERS Safety Report 10600074 (Version 1)
Quarter: 2014Q4

REPORT INFORMATION
  Report Type: Spontaneous
  Country: US (occurrence: US)
  Receive Date: 20141122
  Receipt Date: 20141122
  Transmission Date: 20150529
  Serious: No
  Sender: FDA-Public Use
  Company Number: US-SA-2014SA059702

PATIENT

DRUGS (1)
  1. RENVELA [Suspect]
     Active Substance: SEVELAMER CARBONATE
     Indication: PRODUCT USED FOR UNKNOWN INDICATION
     Dosage: RENVELA PACKET 2.4 G/2 PACKETS (2.4G) WITH MEALS TID
     Route: 048

REACTIONS (2)
  - Constipation [Recovered/Resolved]
  - Overdose [Unknown]
